FAERS Safety Report 17235193 (Version 1)
Quarter: 2020Q1

REPORT INFORMATION
  Report Type: Spontaneous
  Country: GB (occurrence: GB)
  Receive Date: 20200106
  Receipt Date: 20200106
  Transmission Date: 20200409
  Serious: Yes (Hospitalization, Other)
  Sender: FDA-Public Use
  Company Number: GB-TEVA-2019-GB-1162417

PATIENT
  Age: 78 Year
  Sex: Male
  Weight: 55 kg

DRUGS (7)
  1. MADOPAR [Concomitant]
     Active Substance: BENSERAZIDE HYDROCHLORIDE\LEVODOPA
     Dosage: 1 DOSAGE FORMS DAILY; 50MG/12.5MG. 07:45AM
  2. RIVASTIGMINE. [Concomitant]
     Active Substance: RIVASTIGMINE
     Dosage: 3 MILLIGRAM DAILY; 11AM
     Dates: end: 20191102
  3. CIPROFLOXACIN HYDROCHLORIDE. [Suspect]
     Active Substance: CIPROFLOXACIN HYDROCHLORIDE
     Indication: URINARY TRACT INFECTION
     Dosage: 2000 MILLIGRAM DAILY; 8AM AND 8PM, FIRST DOSE DELAYED GIVEN 1PM
     Route: 048
     Dates: start: 20191028, end: 20191101
  4. TRIMETHOPRIM. [Suspect]
     Active Substance: TRIMETHOPRIM
     Indication: URINARY TRACT INFECTION
     Dosage: 80 ML DAILY; 50MG/5ML. 8AM AND 8PM. FIRST DOSE AT 8PM.
     Route: 048
     Dates: start: 20191101, end: 20191102
  5. LOSARTAN. [Concomitant]
     Active Substance: LOSARTAN
     Dosage: 50 MILLIGRAM DAILY; 11AM.
     Dates: end: 20191102
  6. SINEMET [Concomitant]
     Active Substance: CARBIDOPA\LEVODOPA
     Dosage: 1000 MILLIGRAM DAILY; 8AM AND 11AM
     Dates: end: 20191102
  7. CO-AMOXICLAV [Concomitant]
     Active Substance: AMOXICILLIN\CLAVULANATE POTASSIUM
     Dosage: UNKNOWN DOSE.
     Route: 042
     Dates: start: 20191012, end: 20191025

REACTIONS (6)
  - Hypertension [Recovered/Resolved]
  - Vomiting [Unknown]
  - Loss of consciousness [Recovered/Resolved]
  - Somnolence [Unknown]
  - Abdominal pain upper [Unknown]
  - Dizziness [Unknown]

NARRATIVE: CASE EVENT DATE: 20191102
